FAERS Safety Report 19891654 (Version 3)
Quarter: 2024Q2

REPORT INFORMATION
  Report Type: Spontaneous
  Country: PT (occurrence: PT)
  Receive Date: 20210928
  Receipt Date: 20240620
  Transmission Date: 20240716
  Serious: Yes (Death, Congenital Anomaly, Other)
  Sender: FDA-Public Use
  Company Number: PT-VIIV HEALTHCARE LIMITED-PT2021GSK095546

PATIENT

DRUGS (6)
  1. TENOFOVIR DISOPROXIL [Suspect]
     Active Substance: TENOFOVIR DISOPROXIL
     Indication: HIV infection
     Dosage: 245 MILLIGRAM, QD
     Route: 064
  2. DESMOPRESSIN [Suspect]
     Active Substance: DESMOPRESSIN
     Indication: Diabetes insipidus
     Dosage: 0.06 MILLIGRAM, QD
     Route: 064
  3. DESMOPRESSIN [Suspect]
     Active Substance: DESMOPRESSIN
     Dosage: 0.12 MILLIGRAM, QD
     Route: 064
  4. TIVICAY [Suspect]
     Active Substance: DOLUTEGRAVIR SODIUM
     Indication: HIV infection
     Dosage: 50 MILLIGRAM, QD
     Route: 064
  5. SALINE [Suspect]
     Active Substance: SODIUM CHLORIDE
     Indication: Diabetes with hyperosmolarity
     Dosage: UNK
     Route: 064
  6. EMTRICITABINE [Suspect]
     Active Substance: EMTRICITABINE
     Indication: HIV infection
     Dosage: 200 MILLIGRAM, QD
     Route: 064

REACTIONS (6)
  - Oligohydramnios [Fatal]
  - Hypernatraemia [Fatal]
  - Pulmonary hypoplasia [Unknown]
  - Foetal growth restriction [Unknown]
  - Condition aggravated [Unknown]
  - Foetal exposure during pregnancy [Unknown]
